FAERS Safety Report 8935897 (Version 1)
Quarter: 2012Q4

REPORT INFORMATION
  Report Type: 
  Country: US (occurrence: US)
  Receive Date: 20121130
  Receipt Date: 20121130
  Transmission Date: 20130627
  Serious: Yes (Other)
  Sender: FDA-Public Use
  Company Number: US-BAYER-2012-125042

PATIENT

DRUGS (2)
  1. ALEVE CAPLET/TABLET,MIDOL EXTENDED RELIEF CAPLET [Suspect]
  2. COUMADIN [Concomitant]

REACTIONS (4)
  - Haemorrhage [None]
  - Catheter site haemorrhage [None]
  - Freezing phenomenon [None]
  - Muscle spasms [None]
